FAERS Safety Report 9953390 (Version 1)
Quarter: 2014Q1

REPORT INFORMATION
  Report Type: Spontaneous
  Country: US (occurrence: US)
  Receive Date: 20140304
  Receipt Date: 20140304
  Transmission Date: 20141002
  Serious: No
  Sender: FDA-Public Use
  Company Number: US-ABBVIE-13P-163-1074721-00

PATIENT
  Age: 45 Year
  Sex: Male
  Weight: 83.99 kg

DRUGS (5)
  1. HUMIRA [Suspect]
     Indication: POUCHITIS
     Dates: start: 20130318, end: 20130318
  2. CELEBREX [Concomitant]
     Indication: PAIN
  3. CELEBREX [Concomitant]
     Indication: INFLAMMATION
  4. CODEINE [Concomitant]
     Indication: UNEVALUABLE EVENT
  5. ACIPHEX [Concomitant]
     Indication: GASTROOESOPHAGEAL REFLUX DISEASE

REACTIONS (4)
  - Hyperhidrosis [Recovered/Resolved]
  - Hot flush [Recovered/Resolved]
  - Nausea [Recovered/Resolved]
  - Off label use [Not Recovered/Not Resolved]
